FAERS Safety Report 18286476 (Version 9)
Quarter: 2021Q3

REPORT INFORMATION
  Report Type: Spontaneous
  Country: CA (occurrence: CA)
  Receive Date: 20200920
  Receipt Date: 20210820
  Transmission Date: 20211014
  Serious: Yes (Other)
  Sender: FDA-Public Use
  Company Number: CA-CELLTRION INC.-2020CA019845

PATIENT

DRUGS (7)
  1. INFLECTRA [Suspect]
     Active Substance: INFLIXIMAB-DYYB
     Dosage: 300 MG EVERY 8 WEEKS
     Route: 042
     Dates: start: 20200413
  2. INFLECTRA [Suspect]
     Active Substance: INFLIXIMAB-DYYB
     Dosage: 300 MG, EVERY 8 WEEKS
     Dates: start: 20210810
  3. INFLECTRA [Suspect]
     Active Substance: INFLIXIMAB-DYYB
     Dosage: 300 MG EVERY 8 WEEKS
     Route: 042
     Dates: start: 20200914
  4. INFLECTRA [Suspect]
     Active Substance: INFLIXIMAB-DYYB
     Dosage: 300 MG EVERY 8 WEEKS
     Route: 042
     Dates: start: 20210420
  5. INFLECTRA [Suspect]
     Active Substance: INFLIXIMAB-DYYB
     Dosage: 300 MG EVERY 8 WEEKS
     Route: 042
     Dates: start: 20210104
  6. INFLECTRA [Suspect]
     Active Substance: INFLIXIMAB-DYYB
     Indication: CROHN^S DISEASE
     Dosage: 300 MG EVERY 8 WEEKS
     Route: 042
     Dates: start: 20200218
  7. INFLECTRA [Suspect]
     Active Substance: INFLIXIMAB-DYYB
     Dosage: 300 MG, EVERY 8 WEEKS
     Dates: start: 20210615

REACTIONS (8)
  - Intentional product use issue [Unknown]
  - Inappropriate schedule of product administration [Unknown]
  - Post procedural complication [Unknown]
  - Blood pressure diastolic decreased [Unknown]
  - Off label use [Unknown]
  - Pyoderma gangrenosum [Recovered/Resolved]
  - Ischaemic skin ulcer [Unknown]
  - Condition aggravated [Unknown]

NARRATIVE: CASE EVENT DATE: 2020
